FAERS Safety Report 4510721-8 (Version None)
Quarter: 2004Q4

REPORT INFORMATION
  Report Type: 
  Country: None (occurrence: None)
  Receive Date: 20041122
  Receipt Date: 20041108
  Transmission Date: 20050328
  Serious: Yes (Other)
  Sender: FDA-Public Use
  Company Number: 2004091469

PATIENT
  Age: 64 Year
  Sex: Female

DRUGS (3)
  1. LATANOPROST [Suspect]
     Indication: GLAUCOMA
  2. THYRONINE (UNSPECIFIED) (LEVOTHYROXINE) [Concomitant]
  3. HORMONE REPLACEMENT THERAPY (HRT) PESSARIES [Concomitant]

REACTIONS (1)
  - VISUAL ACUITY REDUCED [None]
